FAERS Safety Report 15037666 (Version 1)
Quarter: 2018Q2

REPORT INFORMATION
  Report Type: Spontaneous
  Country: AU (occurrence: AU)
  Receive Date: 20180620
  Receipt Date: 20180620
  Transmission Date: 20180711
  Serious: Yes (Life-Threatening, Other)
  Sender: FDA-Public Use
  Company Number: AU-PURDUE PHARMA-GBR-2015-0033158

PATIENT
  Age: 43 Year
  Sex: Female

DRUGS (2)
  1. OXYCODONE HYDROCHLORIDE / NALOXONE HYDROCHLORIDE [Suspect]
     Active Substance: NALOXONE HYDROCHLORIDE\OXYCODONE HYDROCHLORIDE
     Indication: ANALGESIC THERAPY
     Route: 065
  2. TARGIN [Suspect]
     Active Substance: NALOXONE HYDROCHLORIDE\OXYCODONE HYDROCHLORIDE
     Indication: CANCER PAIN
     Dosage: UNK
     Route: 048

REACTIONS (6)
  - Ascites [Unknown]
  - Metastases to liver [Unknown]
  - Pain [Recovering/Resolving]
  - Drug ineffective [Recovered/Resolved]
  - Overdose [Unknown]
  - Hepatic function abnormal [Unknown]
